FAERS Safety Report 19742860 (Version 2)
Quarter: 2021Q4

REPORT INFORMATION
  Report Type: Spontaneous
  Country: US (occurrence: US)
  Receive Date: 20210824
  Receipt Date: 20211210
  Transmission Date: 20220303
  Serious: No
  Sender: FDA-Public Use
  Company Number: US-PFIZER INC-2020001711

PATIENT
  Age: 55 Year
  Sex: Female

DRUGS (2)
  1. PREMARIN [Suspect]
     Active Substance: ESTROGENS, CONJUGATED
     Indication: Atrophic vulvovaginitis
     Dosage: 1 G, (USE 1 GM VAGINALLY Q (DAILY) SUNDAY AND THURSDAY HS (TAKE AT BEDTIME))
     Route: 067
  2. LYRICA [Concomitant]
     Active Substance: PREGABALIN
     Dosage: UNK
     Dates: start: 2013

REACTIONS (3)
  - Urinary tract infection [Unknown]
  - Off label use [Unknown]
  - Wrong strength [Unknown]
